FAERS Safety Report 17585876 (Version 2)
Quarter: 2020Q2

REPORT INFORMATION
  Report Type: Report from Study
  Country: US (occurrence: US)
  Receive Date: 20200326
  Receipt Date: 20200528
  Transmission Date: 20200713
  Serious: Yes (Other)
  Sender: FDA-Public Use
  Company Number: US-GLAXOSMITHKLINE-US2019TSO237102

PATIENT
  Sex: Female

DRUGS (2)
  1. VARICELLA-ZOSTER VACCINE NOS [Suspect]
     Active Substance: VARICELLA-ZOSTER VACCINE
     Indication: PROPHYLAXIS
  2. NIRAPARIB [Suspect]
     Active Substance: NIRAPARIB
     Indication: FALLOPIAN TUBE CANCER
     Dosage: 100 MG, QD
     Route: 048
     Dates: start: 20191216, end: 20200117

REACTIONS (6)
  - Peripheral swelling [Unknown]
  - Fallopian tube cancer [Unknown]
  - Urinary tract infection [Unknown]
  - Pyrexia [Unknown]
  - Vaccination site infection [Unknown]
  - Underdose [Unknown]
